FAERS Safety Report 4292886-9 (Version None)
Quarter: 2004Q1

REPORT INFORMATION
  Report Type: 
  Country: None (occurrence: None)
  Receive Date: 20040212
  Receipt Date: 20030718
  Transmission Date: 20041129
  Serious: No
  Sender: FDA-Public Use
  Company Number: US-GLAXOSMITHKLINE-A0417307A

PATIENT
  Sex: Male

DRUGS (7)
  1. PAXIL [Suspect]
     Indication: ANXIETY
     Dosage: 10MG PER DAY
     Route: 048
     Dates: start: 20021001
  2. PRILOSEC [Concomitant]
  3. LISINOPRIL [Concomitant]
  4. TAMBOCOR [Concomitant]
  5. COUMADIN [Concomitant]
  6. NORVASC [Concomitant]
  7. SINGULAIR [Concomitant]

REACTIONS (1)
  - PENIS DISORDER [None]
